FAERS Safety Report 8409630-3 (Version None)
Quarter: 2012Q2

REPORT INFORMATION
  Report Type: 
  Country: None (occurrence: None)
  Receive Date: 20120531
  Receipt Date: 20120531
  Transmission Date: 20120825
  Serious: Yes (Other)
  Sender: FDA-Public Use
  Company Number: None

PATIENT
  Age: 72 Year
  Sex: Female
  Weight: 58.9676 kg

DRUGS (1)
  1. BUTRANS [Suspect]
     Indication: OSTEOARTHRITIS
     Dosage: MFG: LTS LOTMAN TRANSDERMAL THERAPIE SYSTEME AG ANDERNACH GERMANY

REACTIONS (7)
  - APPLICATION SITE RASH [None]
  - THERMAL BURN [None]
  - APPLICATION SITE ERYTHEMA [None]
  - APPLICATION SITE PAIN [None]
  - DRUG WITHDRAWAL SYNDROME [None]
  - APPLICATION SITE BURN [None]
  - APPLICATION SITE PRURITUS [None]
